FAERS Safety Report 8394914 (Version 2)
Quarter: 2013Q1

REPORT INFORMATION
  Report Type: Spontaneous
  Country: US (occurrence: US)
  Receive Date: 20120208
  Receipt Date: 20130128
  Transmission Date: 20140127
  Serious: Yes (Hospitalization, Other)
  Sender: FDA-Public Use
  Company Number: US-BAYER-2012-011002

PATIENT
  Age: 29 Year
  Sex: Female
  Weight: 56.69 kg

DRUGS (2)
  1. OCELLA [Suspect]
     Indication: POLYCYSTIC OVARIES
     Dosage: UNK
     Dates: start: 200808, end: 201107
  2. YASMIN [Suspect]
     Indication: POLYCYSTIC OVARIES
     Dosage: UNK
     Dates: start: 2005, end: 200807

REACTIONS (5)
  - Calculus ureteric [Recovered/Resolved]
  - Injury [Recovered/Resolved]
  - Procedural complication [None]
  - Hydronephrosis [Recovered/Resolved]
  - Off label use [None]
